FAERS Safety Report 8710326 (Version 2)
Quarter: 2013Q4

REPORT INFORMATION
  Report Type: Spontaneous
  Country: US (occurrence: US)
  Receive Date: 20120807
  Receipt Date: 20131101
  Transmission Date: 20140711
  Serious: No
  Sender: FDA-Public Use
  Company Number: US-009507513-1207USA003197

PATIENT
  Age: 47 Year
  Sex: Female
  Weight: 61.68 kg

DRUGS (11)
  1. VICTRELIS [Suspect]
     Dosage: 800 MG, TID
     Route: 048
  2. PEGASYS [Concomitant]
     Dosage: 180 MICROGRAM, QM
  3. FLEXERIL [Concomitant]
     Dosage: 10 MG, UNK
  4. XANAX [Concomitant]
     Dosage: 1 MG, UNK
  5. PAXIL [Concomitant]
     Dosage: 10 MG, UNK
  6. METFORMIN [Concomitant]
     Dosage: 500 MG, UNK
  7. REBETOL [Concomitant]
     Dosage: 200 MG, UNK
  8. LEVOTHYROXINE SODIUM [Concomitant]
     Dosage: 100 MICROGRAM, UNK
  9. ACIPHEX [Concomitant]
     Dosage: 20 MG, UNK
  10. PERCOCET [Concomitant]
     Dosage: 7.5-3.25M
  11. WELCHOL [Concomitant]
     Dosage: 625 MG, UNK

REACTIONS (1)
  - Adverse event [Unknown]
